FAERS Safety Report 12074135 (Version 2)
Quarter: 2016Q1

REPORT INFORMATION
  Report Type: Report from Study
  Country: CA (occurrence: CA)
  Receive Date: 20160212
  Receipt Date: 20160301
  Transmission Date: 20160526
  Serious: Yes (Hospitalization, Other)
  Sender: FDA-Public Use
  Company Number: CA-BAYER-2016-023323

PATIENT
  Age: 27 Year
  Sex: Female
  Weight: 69.98 kg

DRUGS (1)
  1. MIRENA [Suspect]
     Active Substance: LEVONORGESTREL
     Indication: CONTRACEPTION
     Dosage: 20 MCG/24HR, CONT
     Route: 015
     Dates: start: 20151203, end: 20160111

REACTIONS (3)
  - Retained products of conception [Recovered/Resolved]
  - Genital haemorrhage [Recovered/Resolved]
  - Induced abortion infection [Recovered/Resolved]

NARRATIVE: CASE EVENT DATE: 2016
